FAERS Safety Report 9430191 (Version 2)
Quarter: 2013Q3

REPORT INFORMATION
  Report Type: Spontaneous
  Country: RU (occurrence: RU)
  Receive Date: 20130730
  Receipt Date: 20130806
  Transmission Date: 20140515
  Serious: Yes (Other)
  Sender: FDA-Public Use
  Company Number: RU-BAXTER-2013BAX029231

PATIENT
  Sex: Female

DRUGS (2)
  1. ENDOKSAN POROSHOK DLJA PRIGOTOVLENIJA RASTVORA DLJA VNUTRIVENNOGO VVED [Suspect]
     Indication: SPLENIC MARGINAL ZONE LYMPHOMA
     Dosage: DAYS 1-3
     Route: 065
  2. FLUDARABINE /01004602/ [Suspect]
     Indication: SPLENIC MARGINAL ZONE LYMPHOMA
     Dosage: DAYS 1-3
     Route: 065

REACTIONS (5)
  - Evans syndrome [Recovered/Resolved]
  - Asthenia [Recovered/Resolved]
  - Fatigue [Recovered/Resolved]
  - Dyspnoea [Recovered/Resolved]
  - Cushing^s syndrome [Recovered/Resolved]
